FAERS Safety Report 6399736 (Version 2)
Quarter: 2012Q4

REPORT INFORMATION
  Report Type: 
  Country: US (occurrence: US)
  Receive Date: 20070831
  Receipt Date: 20121123
  Transmission Date: 20130627
  Serious: Yes (Hospitalization, Disabling, Other)
  Sender: FDA-Public Use
  Company Number: US-AMGEN-STX239864

PATIENT
  Age: 63 Year
  Sex: Female

DRUGS (1)
  1. ENBREL [Suspect]
     Indication: RHEUMATOID ARTHRITIS
     Dosage: 50 mg, qwk
     Route: 058
     Dates: start: 20040701

REACTIONS (16)
  - Hypotension [Unknown]
  - Fall [Unknown]
  - Memory impairment [Unknown]
  - Disorientation [Unknown]
  - Confusional state [Unknown]
  - Feeling abnormal [Unknown]
  - Tearfulness [Unknown]
  - Walking aid user [Unknown]
  - Injection site pain [Unknown]
  - Hip arthroplasty [Unknown]
  - Acoustic neuroma [Unknown]
  - Hydrocephalus [Unknown]
  - Abasia [Unknown]
  - Histoplasmosis [Unknown]
  - Activities of daily living impaired [Unknown]
  - Immunodeficiency [Unknown]
